FAERS Safety Report 8172849-3 (Version None)
Quarter: 2012Q1

REPORT INFORMATION
  Report Type: 
  Country: None (occurrence: None)
  Receive Date: 20120229
  Receipt Date: 20120229
  Transmission Date: 20120608
  Serious: Yes (Other)
  Sender: FDA-Public Use
  Company Number: None

PATIENT
  Age: 61 Year
  Sex: Female
  Weight: 90.718 kg

DRUGS (1)
  1. ATORVASTATIN - GENERIC LIPITOR [Suspect]
     Indication: BLOOD CHOLESTEROL INCREASED
     Dosage: 20.0 MG
     Route: 048
     Dates: start: 20120111, end: 20120118

REACTIONS (4)
  - CHILLS [None]
  - GINGIVAL SWELLING [None]
  - ORAL DISORDER [None]
  - PYREXIA [None]
